FAERS Safety Report 5570524-2 (Version None)
Quarter: 2007Q4

REPORT INFORMATION
  Report Type: 
  Country: None (occurrence: None)
  Receive Date: 20071219
  Receipt Date: 20071211
  Transmission Date: 20080405
  Serious: Yes (Hospitalization, Other)
  Sender: FDA-Public Use
  Company Number: 2007DP024058

PATIENT
  Age: 71 Year
  Sex: Male
  Weight: 115.6672 kg

DRUGS (3)
  1. MIRALAX [Suspect]
     Indication: CONSTIPATION
     Dosage: QD;PO
     Route: 048
     Dates: start: 20070701, end: 20071112
  2. VITAMINS [Concomitant]
  3. OMEGA 3 [Concomitant]

REACTIONS (5)
  - DEHYDRATION [None]
  - FATIGUE [None]
  - HEART RATE INCREASED [None]
  - PALPITATIONS [None]
  - RENAL DISORDER [None]
